FAERS Safety Report 9220902 (Version 1)
Quarter: 2013Q2

REPORT INFORMATION
  Report Type: Spontaneous
  Country: HU (occurrence: HU)
  Receive Date: 20130409
  Receipt Date: 20130409
  Transmission Date: 20140414
  Serious: Yes (Hospitalization)
  Sender: FDA-Public Use
  Company Number: HU-GLAXOSMITHKLINE-B0704563A

PATIENT
  Age: 56 Year
  Sex: Female

DRUGS (4)
  1. TYVERB [Suspect]
     Indication: BREAST CANCER
     Dosage: 6250MG PER DAY
     Route: 065
     Dates: start: 20101117, end: 20110203
  2. XELODA [Suspect]
     Indication: BREAST CANCER
     Dosage: 2000MG PER DAY
     Route: 065
     Dates: start: 20101117, end: 20110203
  3. PRETANIX [Concomitant]
     Indication: HYPERTENSION
     Dosage: 4MG PER DAY
     Dates: start: 20081216
  4. MEDROL [Concomitant]
     Dosage: 8MG PER DAY
     Dates: start: 201008

REACTIONS (3)
  - Clostridium difficile infection [Recovered/Resolved]
  - Diarrhoea [Recovered/Resolved]
  - Vomiting [Recovered/Resolved]
